FAERS Safety Report 18056135 (Version 1)
Quarter: 2020Q3

REPORT INFORMATION
  Report Type: Report from Study
  Country: US (occurrence: US)
  Receive Date: 20200722
  Receipt Date: 20200722
  Transmission Date: 20201103
  Serious: Yes (Other)
  Sender: FDA-Public Use
  Company Number: US-JNJFOC-20200716175

PATIENT
  Sex: Female

DRUGS (12)
  1. STELARA [Suspect]
     Active Substance: USTEKINUMAB
     Indication: PSORIASIS
     Route: 058
     Dates: start: 20170602
  2. CRYSELLE [Concomitant]
     Active Substance: ETHINYL ESTRADIOL\NORGESTREL
     Route: 065
  3. PRAZOSIN HCL [Concomitant]
     Active Substance: PRAZOSIN HYDROCHLORIDE
     Route: 065
  4. STELARA [Suspect]
     Active Substance: USTEKINUMAB
  5. ARIPIPRAZOLE. [Concomitant]
     Active Substance: ARIPIPRAZOLE
  6. LEVOTHYROXIN [Concomitant]
     Active Substance: LEVOTHYROXINE
     Route: 065
  7. OXYBUTYNIN. [Concomitant]
     Active Substance: OXYBUTYNIN CHLORIDE
     Dosage: C TB2
     Route: 065
  8. FLONASE [Concomitant]
     Active Substance: FLUTICASONE PROPIONATE
     Dosage: SUS 50MCG/ACT
  9. OMEPRAZOLE. [Concomitant]
     Active Substance: OMEPRAZOLE
  10. LAMOTRIGINE. [Concomitant]
     Active Substance: LAMOTRIGINE
     Route: 065
  11. VENLAFAXINE [Concomitant]
     Active Substance: VENLAFAXINE HYDROCHLORIDE
     Dosage: CP2
     Route: 065
  12. GABAPENTIN. [Concomitant]
     Active Substance: GABAPENTIN
     Route: 065

REACTIONS (2)
  - Respiratory tract infection fungal [Not Recovered/Not Resolved]
  - Bronchitis chronic [Not Recovered/Not Resolved]
